FAERS Safety Report 8250103-9 (Version None)
Quarter: 2012Q2

REPORT INFORMATION
  Report Type: 
  Country: None (occurrence: None)
  Receive Date: 20120402
  Receipt Date: 20120328
  Transmission Date: 20120825
  Serious: Yes (Death)
  Sender: FDA-Public Use
  Company Number: JP-SANOFI-AVENTIS-2012SA021516

PATIENT

DRUGS (1)
  1. DOCETAXEL [Suspect]
     Route: 065

REACTIONS (1)
  - CARDIAC FAILURE [None]
